FAERS Safety Report 13076410 (Version 3)
Quarter: 2017Q2

REPORT INFORMATION
  Report Type: Spontaneous
  Country: NO (occurrence: NO)
  Receive Date: 20161230
  Receipt Date: 20170405
  Transmission Date: 20170830
  Serious: Yes (Disabling)
  Sender: FDA-Public Use
  Company Number: NO-JNJFOC-20161225912

PATIENT
  Sex: Female
  Weight: 70 kg

DRUGS (6)
  1. RISPERDAL [Suspect]
     Active Substance: RISPERIDONE
     Indication: OBSESSIVE THOUGHTS
     Route: 065
     Dates: start: 199404, end: 2001
  2. SOBRIL [Concomitant]
     Active Substance: OXAZEPAM
     Indication: RESTLESSNESS
     Route: 065
     Dates: start: 1995, end: 2016
  3. RISPERDAL [Suspect]
     Active Substance: RISPERIDONE
     Indication: PSYCHOTIC DISORDER
     Route: 065
     Dates: start: 199404, end: 2001
  4. OLANZAPINE. [Concomitant]
     Active Substance: OLANZAPINE
     Route: 065
  5. SEROQUEL [Suspect]
     Active Substance: QUETIAPINE FUMARATE
     Indication: PSYCHOTIC DISORDER
     Route: 065
     Dates: start: 2003, end: 2008
  6. TRILAFON [Suspect]
     Active Substance: PERPHENAZINE
     Indication: PRODUCT USED FOR UNKNOWN INDICATION
     Route: 042
     Dates: start: 2003

REACTIONS (14)
  - Restlessness [Recovered/Resolved with Sequelae]
  - Fatigue [Unknown]
  - Diabetes mellitus [Unknown]
  - Initial insomnia [Recovered/Resolved with Sequelae]
  - Visual impairment [Recovered/Resolved with Sequelae]
  - Temporomandibular joint syndrome [Unknown]
  - Anxiety [Recovered/Resolved with Sequelae]
  - Disability [Recovered/Resolved with Sequelae]
  - Asthenia [Unknown]
  - Tongue movement disturbance [Recovered/Resolved with Sequelae]
  - Listless [Recovered/Resolved with Sequelae]
  - Tardive dyskinesia [Recovered/Resolved with Sequelae]
  - Discomfort [Recovered/Resolved with Sequelae]
  - Weight increased [Unknown]

NARRATIVE: CASE EVENT DATE: 1994
